FAERS Safety Report 9208316 (Version 1)
Quarter: 2013Q2

REPORT INFORMATION
  Report Type: Spontaneous
  Country: JP (occurrence: JP)
  Receive Date: 20130403
  Receipt Date: 20130403
  Transmission Date: 20140414
  Serious: Yes (Other)
  Sender: FDA-Public Use
  Company Number: JP-ELI_LILLY_AND_COMPANY-JP201303010035

PATIENT
  Age: 0 Year
  Sex: 0
  Weight: 2.08 kg

DRUGS (12)
  1. HUMALOG LISPRO [Suspect]
     Indication: TYPE 1 DIABETES MELLITUS
     Dosage: UNK
     Route: 064
     Dates: end: 20111204
  2. HUMALOG LISPRO [Suspect]
     Indication: TYPE 1 DIABETES MELLITUS
     Dosage: UNK
     Route: 064
     Dates: end: 20111204
  3. HUMALOG LISPRO [Suspect]
     Dosage: UNK
     Dates: start: 20111205
  4. HUMALOG LISPRO [Suspect]
     Dosage: UNK
     Dates: start: 20111205
  5. PROGESTERONE [Concomitant]
     Dosage: UNK
     Route: 064
  6. PROGESTERONE [Concomitant]
     Dosage: UNK
     Route: 064
  7. THYRADIN-S [Concomitant]
     Indication: HYPOTHYROIDISM
     Dosage: 50 UG, QD
     Route: 064
     Dates: end: 20111204
  8. THYRADIN-S [Concomitant]
     Indication: HYPOTHYROIDISM
     Dosage: 50 UG, QD
     Route: 064
     Dates: end: 20111204
  9. THYRADIN-S [Concomitant]
     Dosage: 50 UG, QD
     Dates: start: 20111205, end: 20111220
  10. THYRADIN-S [Concomitant]
     Dosage: 50 UG, QD
     Dates: start: 20111205, end: 20111220
  11. FOLIAMIN [Concomitant]
     Indication: FOLATE DEFICIENCY
     Dosage: 5 MG, QD
     Route: 064
     Dates: start: 20110502, end: 20111203
  12. FOLIAMIN [Concomitant]
     Indication: FOLATE DEFICIENCY
     Dosage: 5 MG, QD
     Route: 064
     Dates: start: 20110502, end: 20111203

REACTIONS (3)
  - Low birth weight baby [Not Recovered/Not Resolved]
  - Foetal exposure during pregnancy [Recovered/Resolved]
  - Exposure during breast feeding [Unknown]
